FAERS Safety Report 6852182-X (Version None)
Quarter: 2010Q3

REPORT INFORMATION
  Report Type: 
  Country: None (occurrence: None)
  Receive Date: 20100717
  Receipt Date: 20080205
  Transmission Date: 20110219
  Serious: No
  Sender: FDA-Public Use
  Company Number: US-PFIZER INC-2007093962

PATIENT
  Sex: Female
  Weight: 59.87 kg

DRUGS (3)
  1. CHANTIX [Suspect]
     Indication: SMOKING CESSATION THERAPY
     Route: 048
     Dates: start: 20080105
  2. LEXAPRO [Concomitant]
  3. XANAX [Concomitant]

REACTIONS (4)
  - ABNORMAL DREAMS [None]
  - DRUG DOSE OMISSION [None]
  - DYSGEUSIA [None]
  - FLATULENCE [None]
